FAERS Safety Report 9467107 (Version 2)
Quarter: 2014Q1

REPORT INFORMATION
  Report Type: Spontaneous
  Country: NL (occurrence: NL)
  Receive Date: 20130820
  Receipt Date: 20140106
  Transmission Date: 20141002
  Serious: Yes (Hospitalization)
  Sender: FDA-Public Use
  Company Number: NL-B.I. PHARMACEUTICALS,INC./RIDGEFIELD-2013-NL-00534NL

PATIENT
  Sex: Male
  Weight: 85 kg

DRUGS (3)
  1. PRADAXA [Suspect]
     Indication: ATRIAL FIBRILLATION
     Dosage: 300 MG
     Dates: start: 20121018, end: 20130723
  2. METOPROLOL [Concomitant]
     Dosage: 200 MG
     Route: 048
  3. SIMVASTATINE [Concomitant]
     Dosage: 10 MG
     Route: 048

REACTIONS (2)
  - Renal infarct [Not Recovered/Not Resolved]
  - Renal failure [Not Recovered/Not Resolved]
